FAERS Safety Report 9244552 (Version 1)
Quarter: 2013Q2

REPORT INFORMATION
  Report Type: Spontaneous
  Country: JP (occurrence: JP)
  Receive Date: 20130422
  Receipt Date: 20130422
  Transmission Date: 20140414
  Serious: Yes (Other)
  Sender: FDA-Public Use
  Company Number: PHHY2013JP038009

PATIENT
  Sex: 0

DRUGS (2)
  1. EVEROLIMUS [Suspect]
     Indication: HEART TRANSPLANT
     Dosage: UNK
  2. CYCLOSPORINE [Concomitant]

REACTIONS (4)
  - Arthritis [Unknown]
  - Gingival hypertrophy [Unknown]
  - Alopecia [Unknown]
  - Stomatitis [Unknown]
